FAERS Safety Report 20513335 (Version 1)
Quarter: 2022Q1

REPORT INFORMATION
  Report Type: Spontaneous
  Country: US (occurrence: US)
  Receive Date: 20220224
  Receipt Date: 20220224
  Transmission Date: 20220423
  Serious: No
  Sender: FDA-Public Use
  Company Number: US-AMNEAL PHARMACEUTICALS-2021-AMRX-02680

PATIENT
  Sex: Female

DRUGS (1)
  1. RYTARY [Suspect]
     Active Substance: CARBIDOPA\LEVODOPA
     Indication: Product used for unknown indication
     Dosage: 2 CAPSULES, 4X/DAY
     Route: 065
     Dates: start: 20150902

REACTIONS (3)
  - Eye complication associated with device [Unknown]
  - Swelling of eyelid [Recovering/Resolving]
  - Eyelid contusion [Unknown]
